FAERS Safety Report 14693011 (Version 4)
Quarter: 2020Q3

REPORT INFORMATION
  Report Type: Spontaneous
  Country: DE (occurrence: DE)
  Receive Date: 20180329
  Receipt Date: 20200908
  Transmission Date: 20201102
  Serious: Yes (Hospitalization)
  Sender: FDA-Public Use
  Company Number: PHHY2016DE186577

PATIENT
  Age: 71 Year
  Sex: Male
  Weight: 93 kg

DRUGS (7)
  1. CYCLOPHOSPHAMIDE. [Suspect]
     Active Substance: CYCLOPHOSPHAMIDE
     Indication: DIFFUSE LARGE B-CELL LYMPHOMA
     Dosage: 1 OT, Q2W
     Route: 042
     Dates: start: 20160303, end: 20160511
  2. PREDNISOLONE. [Suspect]
     Active Substance: PREDNISOLONE
     Indication: DIFFUSE LARGE B-CELL LYMPHOMA
     Dosage: 1 OT, Q2W
     Route: 065
     Dates: start: 20160303, end: 20160511
  3. MABTHERA [Suspect]
     Active Substance: RITUXIMAB
     Dosage: 375 MG/M2 (790 MG)
     Route: 042
     Dates: start: 20160303, end: 20160303
  4. RAMIPRIL. [Concomitant]
     Active Substance: RAMIPRIL
     Indication: HYPERTENSION
     Dosage: 2.5 MG
     Route: 048
  5. HYDROXYDAUNORUBICIN [Suspect]
     Active Substance: DOXORUBICIN
     Indication: DIFFUSE LARGE B-CELL LYMPHOMA
     Dosage: 1 OT, Q2W
     Route: 042
     Dates: start: 20160303, end: 20160511
  6. VINCRISTINE [Suspect]
     Active Substance: VINCRISTINE
     Indication: DIFFUSE LARGE B-CELL LYMPHOMA
     Dosage: 1 OT, Q2W
     Route: 042
     Dates: start: 20160303, end: 20160511
  7. MABTHERA [Suspect]
     Active Substance: RITUXIMAB
     Indication: DIFFUSE LARGE B-CELL LYMPHOMA
     Dosage: 790 MG/M2, UNK
     Route: 042

REACTIONS (2)
  - Taste disorder [Recovered/Resolved]
  - Sinus tachycardia [Recovered/Resolved]

NARRATIVE: CASE EVENT DATE: 20160309
